FAERS Safety Report 15119357 (Version 1)
Quarter: 2018Q3

REPORT INFORMATION
  Report Type: Spontaneous
  Country: SE (occurrence: SE)
  Receive Date: 20180709
  Receipt Date: 20180709
  Transmission Date: 20181010
  Serious: Yes (Hospitalization)
  Sender: FDA-Public Use
  Company Number: SE-ORION CORPORATION ORION PHARMA-18_00004025

PATIENT
  Age: 72 Year
  Sex: Female

DRUGS (13)
  1. LATANOPROST. [Concomitant]
     Active Substance: LATANOPROST
     Route: 065
  2. SIMVASTATIN. [Concomitant]
     Active Substance: SIMVASTATIN
     Route: 065
  3. LOSARTAN. [Concomitant]
     Active Substance: LOSARTAN
     Route: 065
  4. FOLIC ACID (HYDRATED) [Concomitant]
     Route: 065
  5. ELIQUIS [Concomitant]
     Active Substance: APIXABAN
     Dosage: STRENGTH: 2.5 MG
     Route: 065
  6. METHOTREXATE (TRADE NAME UNKNOWN) [Suspect]
     Active Substance: METHOTREXATE
     Indication: PSORIATIC ARTHROPATHY
     Route: 065
     Dates: end: 20180516
  7. ALVEDON [Concomitant]
     Active Substance: ACETAMINOPHEN
     Dosage: STRENGTH: 500 MG
     Route: 065
  8. MOVICOL [Concomitant]
     Active Substance: POLYETHYLENE GLYCOL 3350\POTASSIUM CHLORIDE\SODIUM BICARBONATE\SODIUM CHLORIDE
     Route: 065
  9. SELOKENZOC [Concomitant]
     Active Substance: METOPROLOL SUCCINATE
     Dosage: STRENGTH: 50 MG
     Route: 065
  10. DESONIX [Concomitant]
     Dosage: STRENGTH: 64 MICROGRAM/DOSE
     Route: 065
  11. CANODERM [Concomitant]
     Dosage: STRENGTH: 5%
     Route: 065
  12. AZOPT [Concomitant]
     Active Substance: BRINZOLAMIDE
     Dosage: STRENGTH: 10 MG/ML
     Route: 065
  13. SAROTEN [Concomitant]
     Active Substance: AMITRIPTYLINE
     Dosage: STRENGTH: 10 MG
     Route: 065

REACTIONS (1)
  - Eosinophilic pneumonia [Recovered/Resolved with Sequelae]

NARRATIVE: CASE EVENT DATE: 20180501
